FAERS Safety Report 5710938-0 (Version None)
Quarter: 2008Q2

REPORT INFORMATION
  Report Type: 
  Country: None (occurrence: None)
  Receive Date: 20080421
  Receipt Date: 20080410
  Transmission Date: 20081010
  Serious: Yes (Other)
  Sender: FDA-Public Use
  Company Number: PHHY2008BR05538

PATIENT
  Sex: Female

DRUGS (1)
  1. CATAFLAM [Suspect]
     Indication: BACK PAIN
     Dosage: 75 MG
     Route: 030

REACTIONS (4)
  - ABORTION SPONTANEOUS [None]
  - DRUG EXPOSURE DURING PREGNANCY [None]
  - INTRA-UTERINE DEATH [None]
  - PROLONGED PREGNANCY [None]
